FAERS Safety Report 10037624 (Version 1)
Quarter: 2014Q1

REPORT INFORMATION
  Report Type: Spontaneous
  Country: US (occurrence: None)
  Receive Date: 20140306
  Receipt Date: 20140306
  Transmission Date: 20141002
  Serious: Yes (Other)
  Sender: FDA-Public Use
  Company Number: 163-21880-13074922

PATIENT
  Age: 65 Year
  Sex: Male
  Weight: 81.65 kg

DRUGS (8)
  1. REVLIMID (LENALIDOMIDE) (25 MILLIGRAM, CAPSULES) [Suspect]
     Indication: PLASMA CELL MYELOMA
     Route: 048
     Dates: start: 20100517
  2. DECADRON (DEXAMETHASONE) [Concomitant]
  3. LOVENOX (HEPARIN-FRACTION, SODIUM SALT) [Concomitant]
  4. LORAZEPAM (LORAZEPAM) [Concomitant]
  5. OMEPRAZOLE (OMEPRAZOLE) [Concomitant]
  6. ACYCLOVIR (ACICLOVIR) [Concomitant]
  7. BACTRIM (BACTRIM) [Concomitant]
  8. SUPER B-COMPLEX  (BEMINAL WITH C FORTIS) [Concomitant]

REACTIONS (2)
  - Thrombosis [None]
  - Fatigue [None]
